FAERS Safety Report 6062836-3 (Version None)
Quarter: 2009Q1

REPORT INFORMATION
  Report Type: 
  Country: None (occurrence: None)
  Receive Date: 20090202
  Receipt Date: 20090202
  Transmission Date: 20090719
  Serious: Yes (Other)
  Sender: FDA-Public Use
  Company Number: None

PATIENT
  Age: 58 Year
  Sex: Female
  Weight: 68.0396 kg

DRUGS (1)
  1. CHANTIX [Suspect]
     Indication: SMOKING CESSATION THERAPY
     Dosage: 1 TABLET TWICE DAILY PO
     Route: 048
     Dates: start: 20081101, end: 20090120

REACTIONS (3)
  - AGGRESSION [None]
  - ANGER [None]
  - FEELING ABNORMAL [None]
